FAERS Safety Report 4501145-8 (Version None)
Quarter: 2004Q4

REPORT INFORMATION
  Report Type: 
  Country: None (occurrence: None)
  Receive Date: 20041110
  Receipt Date: 20041025
  Transmission Date: 20050328
  Serious: Yes (Hospitalization, Other)
  Sender: FDA-Public Use
  Company Number: 206792

PATIENT
  Sex: Female

DRUGS (1)
  1. AVONEX [Suspect]
     Indication: MULTIPLE SCLEROSIS
     Dosage: 30 MCG QW IM
     Route: 030
     Dates: start: 20010101

REACTIONS (5)
  - ANGIOPLASTY [None]
  - CARDIAC DISORDER [None]
  - CONDITION AGGRAVATED [None]
  - KNEE ARTHROPLASTY [None]
  - LIMB OPERATION [None]
